FAERS Safety Report 8847245 (Version 1)
Quarter: 2012Q4

REPORT INFORMATION
  Report Type: 
  Country: US (occurrence: US)
  Receive Date: 20121018
  Receipt Date: 20121018
  Transmission Date: 20130627
  Serious: Yes (Other)
  Sender: FDA-Public Use
  Company Number: PHHY2012US091999

PATIENT
  Age: 18 Year
  Sex: Female

DRUGS (4)
  1. MYCOPHENOLATE SODIUM [Suspect]
     Indication: RENAL TRANSPLANT
  2. DACLIZUMAB [Concomitant]
     Indication: RENAL TRANSPLANT
  3. PREDNISONE [Concomitant]
     Indication: RENAL TRANSPLANT
  4. TACROLIMUS [Concomitant]
     Indication: RENAL TRANSPLANT

REACTIONS (4)
  - Renal failure chronic [Unknown]
  - Skin papilloma [Recovered/Resolved]
  - Skin lesion [Recovered/Resolved]
  - Polyomavirus-associated nephropathy [Recovered/Resolved]
